FAERS Safety Report 9331482 (Version 2)
Quarter: 2014Q1

REPORT INFORMATION
  Report Type: Spontaneous
  Country: US (occurrence: US)
  Receive Date: 20130605
  Receipt Date: 20140307
  Transmission Date: 20141002
  Serious: Yes (Other)
  Sender: FDA-Public Use
  Company Number: US-BAYER-2013-068273

PATIENT
  Age: 13 Month
  Sex: Male

DRUGS (1)
  1. KOGENATE FS [Suspect]
     Dosage: 5 INFUSIONS (NOS)

REACTIONS (2)
  - Anti factor VIII antibody positive [None]
  - Drug ineffective [None]
